FAERS Safety Report 6231428-5 (Version None)
Quarter: 2009Q2

REPORT INFORMATION
  Report Type: 
  Country: None (occurrence: None)
  Receive Date: 20090616
  Receipt Date: 20090609
  Transmission Date: 20091009
  Serious: Yes (Other)
  Sender: FDA-Public Use
  Company Number: US-JNJFOC-20090603767

PATIENT
  Age: 4 Year

DRUGS (2)
  1. TYLENOL (GELTAB) [Suspect]
     Route: 048
  2. TYLENOL (GELTAB) [Suspect]
     Indication: ACCIDENTAL EXPOSURE
     Dosage: APPROXIMATELY 2400 MG TO 3200 MG
     Route: 048

REACTIONS (2)
  - ACCIDENTAL DRUG INTAKE BY CHILD [None]
  - ACCIDENTAL OVERDOSE [None]
